FAERS Safety Report 5123895-5 (Version None)
Quarter: 2006Q4

REPORT INFORMATION
  Report Type: 
  Country: None (occurrence: None)
  Receive Date: 20061010
  Receipt Date: 20061004
  Transmission Date: 20070319
  Serious: Yes (Other)
  Sender: FDA-Public Use
  Company Number: GB-BRISTOL-MYERS SQUIBB COMPANY-13534870

PATIENT

DRUGS (2)
  1. STAVUDINE [Suspect]
  2. DIDANOSINE [Suspect]
     Dates: start: 20010101

REACTIONS (1)
  - HEPATIC FIBROSIS [None]
